FAERS Safety Report 13795278 (Version 3)
Quarter: 2017Q3

REPORT INFORMATION
  Report Type: Report from Study
  Country: US (occurrence: US)
  Receive Date: 20170726
  Receipt Date: 20170908
  Transmission Date: 20171127
  Serious: Yes (Hospitalization)
  Sender: FDA-Public Use
  Company Number: US-ACTELION-A-NJ2017-157208

PATIENT
  Age: 60 Year
  Sex: Female
  Weight: 62.13 kg

DRUGS (1)
  1. VELETRI [Suspect]
     Active Substance: EPOPROSTENOL
     Indication: PULMONARY ARTERIAL HYPERTENSION
     Dosage: 25 NG/KG, PER MIN
     Route: 042

REACTIONS (4)
  - Diarrhoea [Unknown]
  - Pneumonia [Unknown]
  - Mental status changes [Unknown]
  - Bronchitis [Unknown]
